FAERS Safety Report 5896984-5 (Version None)
Quarter: 2008Q3

REPORT INFORMATION
  Report Type: 
  Country: None (occurrence: None)
  Receive Date: 20080923
  Receipt Date: 20080912
  Transmission Date: 20090109
  Serious: Yes (Other)
  Sender: FDA-Public Use
  Company Number: 232503J08USA

PATIENT
  Age: 47 Year
  Sex: Female
  Weight: 90.7194 kg

DRUGS (8)
  1. REBIF [Suspect]
     Indication: MULTIPLE SCLEROSIS
     Dosage: 44 MCG, 3 IN 1 WEEKS, SUBCUTANEOUS; 22 MCG, 3 IN 1 WEEKS, SUBCUTANEOUS
     Route: 058
     Dates: start: 20070313, end: 20080101
  2. REBIF [Suspect]
     Indication: MULTIPLE SCLEROSIS
     Dosage: 44 MCG, 3 IN 1 WEEKS, SUBCUTANEOUS; 22 MCG, 3 IN 1 WEEKS, SUBCUTANEOUS
     Route: 058
     Dates: start: 20080801
  3. SYNTHROID [Suspect]
     Dosage: NOT REPORTED, NOT REPORTED, NOT REPORTED
  4. NEURONTIN [Suspect]
     Indication: HYPOAESTHESIA
     Dosage: NOT REPORTED, NOT REPORTED, NOT REPORTED
  5. NEURONTIN [Suspect]
     Indication: PARAESTHESIA
     Dosage: NOT REPORTED, NOT REPORTED, NOT REPORTED
  6. NAPROSYN [Suspect]
     Dosage: NOT REPORTED, NOT REPORTED, NOT REPORTED
  7. CYMBALTA [Suspect]
     Indication: HYPOAESTHESIA
     Dosage: NOT REPORTED, NOT REPORTED, NOT REPORTED
  8. CYMBALTA [Suspect]
     Indication: PARAESTHESIA
     Dosage: NOT REPORTED, NOT REPORTED, NOT REPORTED

REACTIONS (4)
  - BREAST CANCER STAGE I [None]
  - BREAST MASS [None]
  - HAEMATOCRIT DECREASED [None]
  - WHITE BLOOD CELL COUNT DECREASED [None]
